FAERS Safety Report 21378906 (Version 1)
Quarter: 2022Q3

REPORT INFORMATION
  Report Type: Spontaneous
  Country: AT (occurrence: AT)
  Receive Date: 20220927
  Receipt Date: 20220927
  Transmission Date: 20221027
  Serious: Yes (Other)
  Sender: FDA-Public Use
  Company Number: AT-BRISTOL-MYERS SQUIBB COMPANY-2022-111202

PATIENT
  Age: 82 Year
  Sex: Male

DRUGS (2)
  1. LUSPATERCEPT [Suspect]
     Active Substance: LUSPATERCEPT
     Indication: Myelodysplastic syndrome
     Dosage: DOSE : 1MG/KG BODY WEIGHT;     FREQ : UNAVAILABLE
     Route: 065
     Dates: start: 20220711
  2. LUSPATERCEPT [Suspect]
     Active Substance: LUSPATERCEPT
     Indication: Refractory cytopenia with multilineage dysplasia

REACTIONS (1)
  - Vascular dementia [Unknown]
